FAERS Safety Report 7492989-1 (Version None)
Quarter: 2011Q2

REPORT INFORMATION
  Report Type: 
  Country: None (occurrence: None)
  Receive Date: 20110519
  Receipt Date: 20110519
  Transmission Date: 20111010
  Serious: Yes (Other)
  Sender: FDA-Public Use
  Company Number: None

PATIENT
  Sex: Female
  Weight: 57.6 kg

DRUGS (11)
  1. LAPATINIB [Suspect]
     Indication: BREAST CANCER METASTATIC
     Dosage: 1500MG PO DAILY
     Route: 048
     Dates: start: 20110401, end: 20110415
  2. MORPHINE [Concomitant]
  3. BUSPAR [Concomitant]
  4. CELEXA [Concomitant]
  5. FENTANYL-100 [Concomitant]
  6. COMPAZINE [Concomitant]
  7. VITAMIN D [Concomitant]
  8. POTASSIUM CHLORIDE [Concomitant]
  9. DULCOLAX [Concomitant]
  10. ATIVAN [Concomitant]
  11. EVEROLIMUS [Suspect]
     Indication: BREAST CANCER METASTATIC
     Dosage: 5MG PO DAILY
     Route: 048
     Dates: start: 20110401, end: 20110415

REACTIONS (3)
  - PNEUMONITIS [None]
  - DYSPNOEA [None]
  - DIARRHOEA [None]
